FAERS Safety Report 21144204 (Version 1)
Quarter: 2022Q3

REPORT INFORMATION
  Report Type: Report from Study
  Country: US (occurrence: US)
  Receive Date: 20220728
  Receipt Date: 20220728
  Transmission Date: 20221027
  Serious: Yes (Other)
  Sender: FDA-Public Use
  Company Number: US-BoehringerIngelheim-2022-BI-170175

PATIENT
  Age: 72 Year
  Sex: Female

DRUGS (2)
  1. OFEV [Suspect]
     Active Substance: NINTEDANIB
     Indication: Idiopathic pulmonary fibrosis
     Route: 048
  2. OFEV [Suspect]
     Active Substance: NINTEDANIB
     Route: 048

REACTIONS (6)
  - Near death experience [Recovered/Resolved]
  - Hypotension [Recovered/Resolved]
  - Diarrhoea [Recovering/Resolving]
  - Hepatic enzyme increased [Recovered/Resolved]
  - Gastrointestinal disorder [Recovered/Resolved]
  - Dehydration [Recovered/Resolved]
